FAERS Safety Report 11980425 (Version 2)
Quarter: 2016Q1

REPORT INFORMATION
  Report Type: Spontaneous
  Country: IT (occurrence: IT)
  Receive Date: 20160129
  Receipt Date: 20160204
  Transmission Date: 20160526
  Serious: No
  Sender: FDA-Public Use
  Company Number: IT-SA-2016SA013409

PATIENT
  Age: 92 Year
  Sex: Male

DRUGS (2)
  1. LASIX [Suspect]
     Active Substance: FUROSEMIDE
     Dosage: 25 MG
     Route: 048
     Dates: start: 2010
  2. LASIX [Suspect]
     Active Substance: FUROSEMIDE
     Route: 048

REACTIONS (1)
  - Pruritus [Not Recovered/Not Resolved]
